FAERS Safety Report 12944178 (Version 2)
Quarter: 2016Q4

REPORT INFORMATION
  Report Type: Spontaneous
  Country: US (occurrence: US)
  Receive Date: 20161115
  Receipt Date: 20161121
  Transmission Date: 20170207
  Serious: No
  Sender: FDA-Public Use
  Company Number: US-PFIZER INC-2016531592

PATIENT
  Age: 55 Year
  Sex: Female
  Weight: 81 kg

DRUGS (4)
  1. CHANTIX [Suspect]
     Active Substance: VARENICLINE TARTRATE
     Indication: SMOKING CESSATION THERAPY
     Dosage: 0.5 MG, 1X/DAY (IN THE MORNING)
     Route: 048
     Dates: start: 20161107, end: 201611
  2. CHANTIX [Suspect]
     Active Substance: VARENICLINE TARTRATE
     Dosage: 0.5 MG, 2X/DAY (IN MORNING AND NIGHT)
     Route: 048
     Dates: start: 201611
  3. DULERA [Concomitant]
     Active Substance: FORMOTEROL FUMARATE DIHYDRATE\MOMETASONE FUROATE
     Indication: CHRONIC OBSTRUCTIVE PULMONARY DISEASE
     Dosage: 13GM 100-5 INHALER TWO INHALATIONS IN THE MORNING AND TWO AT NIGHT, 2X/DAY
     Route: 055
     Dates: start: 2013
  4. SPIRIVA [Concomitant]
     Active Substance: TIOTROPIUM BROMIDE MONOHYDRATE
     Indication: CHRONIC OBSTRUCTIVE PULMONARY DISEASE
     Dosage: 4GM 2.5MCG ONE INHALATION IN THE MORNING AND ONE AT NIGHT (TAKEN AT THE SAME TIMES EVERY DAY)
     Route: 055

REACTIONS (5)
  - Sleep disorder [Not Recovered/Not Resolved]
  - Body height decreased [Unknown]
  - Fatigue [Not Recovered/Not Resolved]
  - Apathy [Unknown]
  - Drug ineffective [Unknown]

NARRATIVE: CASE EVENT DATE: 201611
